FAERS Safety Report 16590393 (Version 1)
Quarter: 2019Q3

REPORT INFORMATION
  Report Type: Spontaneous
  Country: US (occurrence: US)
  Receive Date: 20190718
  Receipt Date: 20190718
  Transmission Date: 20191004
  Serious: No
  Sender: FDA-Public Use
  Company Number: US-BEH-2019104468

PATIENT
  Sex: Male
  Weight: 126.08 kg

DRUGS (2)
  1. HIZENTRA [Suspect]
     Active Substance: HUMAN IMMUNOGLOBULIN G
     Dosage: 20 GRAM, QW
     Route: 058
  2. HIZENTRA [Suspect]
     Active Substance: HUMAN IMMUNOGLOBULIN G
     Dosage: 20 GRAM, TOT
     Route: 058
     Dates: start: 20190708, end: 20190708

REACTIONS (1)
  - Infusion site haemorrhage [Recovered/Resolved]

NARRATIVE: CASE EVENT DATE: 20190708
